FAERS Safety Report 20171288 (Version 5)
Quarter: 2022Q1

REPORT INFORMATION
  Report Type: Report from Study
  Country: JP (occurrence: JP)
  Receive Date: 20211210
  Receipt Date: 20220127
  Transmission Date: 20220424
  Serious: Yes (Hospitalization)
  Sender: FDA-Public Use
  Company Number: JP-ALXN-A202113514

PATIENT
  Age: 58 Year
  Sex: Female
  Weight: 61 kg

DRUGS (20)
  1. RAVULIZUMAB [Suspect]
     Active Substance: RAVULIZUMAB
     Indication: Myasthenia gravis
     Dosage: UNK
     Route: 042
     Dates: start: 20210324
  2. RAVULIZUMAB [Suspect]
     Active Substance: RAVULIZUMAB
     Dosage: UNK
     Route: 042
     Dates: start: 20211027
  3. PLACEBO [Suspect]
     Active Substance: UNSPECIFIED INGREDIENT
     Indication: Myasthenia gravis
     Dosage: UNK
     Route: 042
     Dates: start: 20200909
  4. ALENDRONATE [Concomitant]
     Active Substance: ALENDRONATE SODIUM
     Indication: Prophylaxis
     Dosage: 5 MG, QD
     Route: 048
  5. AMLODIPINE [Concomitant]
     Active Substance: AMLODIPINE BESYLATE
     Indication: Hypertension
     Dosage: 10 MG, QD
     Route: 048
  6. BEZAFIBRATE [Concomitant]
     Active Substance: BEZAFIBRATE
     Indication: Hyperlipidaemia
     Dosage: 200 MG, BID
     Route: 048
  7. INDOMETHACIN [Concomitant]
     Active Substance: INDOMETHACIN
     Indication: Back pain
     Dosage: 70 MG, QD
     Route: 062
  8. FAMOTIDINE [Concomitant]
     Active Substance: FAMOTIDINE
     Indication: Prophylaxis
     Dosage: 20 MG, BID
     Route: 048
  9. GLYCOSAMINOGLYCANS [Concomitant]
     Active Substance: GLYCOSAMINOGLYCANS
     Indication: Eczema asteatotic
     Dosage: UNK ML, PRN
     Route: 062
     Dates: start: 20210407
  10. HYALURONATE SODIUM [Concomitant]
     Active Substance: HYALURONATE SODIUM
     Indication: Cataract
     Dosage: 0.5 %, 2-3 DROPS BID
     Route: 047
  11. POTASSIUM CHLORIDE [Concomitant]
     Active Substance: POTASSIUM CHLORIDE
     Indication: Hypokalaemia
     Dosage: 600 MG, TID
     Route: 048
  12. LAC-B GRANULAR POWDER N [Concomitant]
     Indication: Abdominal distension
     Dosage: 10 MG, TID
     Route: 048
     Dates: start: 20210224
  13. METGLUCO [Concomitant]
     Active Substance: METFORMIN HYDROCHLORIDE
     Indication: Diabetes mellitus
     Dosage: 250 MG, QD
     Route: 048
     Dates: start: 20210908
  14. NIFURAN [Concomitant]
     Indication: Cataract
     Dosage: 0.5 %, 2-3 DROPS BID
     Route: 047
  15. OLMESARTAN MEDOXOMIL [Concomitant]
     Active Substance: OLMESARTAN MEDOXOMIL
     Indication: Hypertension
     Dosage: 20 MG, QD
     Route: 048
  16. POVIDONE-IODINE [Concomitant]
     Active Substance: POVIDONE-IODINE
     Indication: Prophylaxis
     Dosage: 1 ML, QD
     Route: 050
  17. PREDNISOLONE [Concomitant]
     Active Substance: PREDNISOLONE
     Indication: Myasthenia gravis
     Dosage: 30 MG, QOD
     Route: 048
     Dates: start: 20211028
  18. FELBINAC [Concomitant]
     Active Substance: FELBINAC
     Indication: Back pain
     Dosage: UNK G, PRN
     Route: 062
  19. TACROLIMUS [Concomitant]
     Active Substance: TACROLIMUS
     Indication: Myasthenia gravis
     Dosage: 3 MG, QD
     Route: 048
     Dates: start: 20020712
  20. ZETIA [Concomitant]
     Active Substance: EZETIMIBE
     Indication: Hyperlipidaemia
     Dosage: 10 MG, QD
     Route: 048
     Dates: start: 20201007

REACTIONS (1)
  - Cellulitis [Recovered/Resolved]

NARRATIVE: CASE EVENT DATE: 20211207
